FAERS Safety Report 6889970-X (Version None)
Quarter: 2010Q3

REPORT INFORMATION
  Report Type: 
  Country: None (occurrence: None)
  Receive Date: 20100730
  Receipt Date: 20080612
  Transmission Date: 20110219
  Serious: No
  Sender: FDA-Public Use
  Company Number: US-PFIZER INC-2008049850

PATIENT
  Sex: Female

DRUGS (2)
  1. LIPITOR [Suspect]
     Indication: BLOOD CHOLESTEROL INCREASED
     Dosage: 4-5 DAYS PER WEEK
  2. SIMVASTATIN [Suspect]

REACTIONS (2)
  - MUSCULAR WEAKNESS [None]
  - MYALGIA [None]
